FAERS Safety Report 7585274-0 (Version None)
Quarter: 2011Q3

REPORT INFORMATION
  Report Type: 
  Country: None (occurrence: None)
  Receive Date: 20110701
  Receipt Date: 20110624
  Transmission Date: 20111222
  Serious: Yes (Hospitalization)
  Sender: FDA-Public Use
  Company Number: JP-SHIRE-SPV1-2010-02187

PATIENT
  Sex: Female

DRUGS (2)
  1. FOSRENOL [Suspect]
     Indication: HYPERPHOSPHATAEMIA
     Dosage: 750 MG, 1X/DAY:QD
     Route: 048
     Dates: end: 20100101
  2. FOSRENOL [Suspect]
     Dosage: 1500 MG, 1X/DAY:QD
     Route: 048
     Dates: start: 20100101

REACTIONS (1)
  - GASTRIC ULCER [None]
